FAERS Safety Report 7107582-X (Version None)
Quarter: 2010Q4

REPORT INFORMATION
  Report Type: 
  Country: None (occurrence: None)
  Receive Date: 20101117
  Receipt Date: 20101110
  Transmission Date: 20110411
  Serious: Yes (Other)
  Sender: FDA-Public Use
  Company Number: US-PFIZER INC-2010145177

PATIENT
  Sex: Female

DRUGS (1)
  1. RELPAX [Suspect]
     Dosage: UNK
     Route: 048

REACTIONS (2)
  - RASH [None]
  - SWOLLEN TONGUE [None]
